FAERS Safety Report 9789796 (Version 2)
Quarter: 2014Q1

REPORT INFORMATION
  Report Type: Spontaneous
  Country: DE (occurrence: DE)
  Receive Date: 20131231
  Receipt Date: 20140129
  Transmission Date: 20141002
  Serious: Yes (Congenital Anomaly)
  Sender: FDA-Public Use
  Company Number: DE-RANBAXY-2013RR-76622

PATIENT
  Age: 1 Day
  Sex: Female
  Weight: 1.62 kg

DRUGS (9)
  1. AMIODARONE [Suspect]
     Indication: ARRHYTHMIA
     Dosage: 200 MG/DAY, 0-6 GESTATIONAL WEEKS
     Route: 064
  2. GABAPENTIN [Suspect]
     Indication: PAIN
     Dosage: 800 MG, TID, 0-8 GESTATIONAL WEEKS
     Route: 064
  3. BISOPROLOL [Suspect]
     Indication: HEART VALVE REPLACEMENT
     Dosage: 2.5 MG, QD, GESTATIONAL WEEKS 0-32.2
     Route: 064
     Dates: start: 20090801, end: 20100315
  4. AMITRIPTYLINE [Suspect]
     Indication: PAIN
     Dosage: 75 MG, QD, GESTATIONAL WEEKS 0-32.2
     Route: 064
     Dates: start: 20090801, end: 20130315
  5. BUPRENORPHINE [Suspect]
     Indication: PAIN
     Dosage: 70 ?G, QD, GESTATIONAL WEEKS 0-32.2
     Route: 064
     Dates: start: 20090801
  6. OMEPRAZOL [Concomitant]
     Indication: PROPHYLAXIS AGAINST GASTROINTESTINAL ULCER
     Dosage: UNK, 0-10 GESTATIONAL WEEKS
     Route: 064
  7. MOVICOL [Concomitant]
     Indication: LAXATIVE SUPPORTIVE CARE
     Dosage: TWICE WEEKLY, THEN DAILY, 0-32.2 GESTATIONAL WEEKS
     Route: 064
     Dates: start: 20090801, end: 20100315
  8. ACETYLSALICYLSAURE [Concomitant]
     Indication: THROMBOSIS PROPHYLAXIS
     Dosage: 100 MG, QD, GESTATIONAL WEEKS 0-32.2
     Route: 064
     Dates: start: 20090801, end: 20100315
  9. VITAVERLAN [Concomitant]
     Indication: PROPHYLAXIS OF NEURAL TUBE DEFECT
     Dosage: 0.4 MG, QD, 10-12 GESTATIONAL WEEKS
     Route: 064

REACTIONS (3)
  - Ventricular septal defect [Recovered/Resolved]
  - Small for dates baby [Recovered/Resolved]
  - Atrial septal defect [Not Recovered/Not Resolved]
